FAERS Safety Report 18300434 (Version 1)
Quarter: 2020Q3

REPORT INFORMATION
  Report Type: Spontaneous
  Country: US (occurrence: US)
  Receive Date: 20200923
  Receipt Date: 20200923
  Transmission Date: 20201103
  Serious: Yes (Life-Threatening, Hospitalization)
  Sender: FDA-Public Use
  Company Number: None

PATIENT
  Age: 70 Year
  Sex: Male

DRUGS (1)
  1. DOCETAXEL (DOCETAXEL 10MG/ML INJ, CONC) [Suspect]
     Active Substance: DOCETAXEL ANHYDROUS
     Dosage: ?          OTHER ROUTE:IV?
     Dates: start: 20200416

REACTIONS (3)
  - Oxygen saturation decreased [None]
  - Infusion related reaction [None]
  - Seizure [None]

NARRATIVE: CASE EVENT DATE: 20200416
